FAERS Safety Report 12001733 (Version 3)
Quarter: 2017Q4

REPORT INFORMATION
  Report Type: Report from Study
  Country: US (occurrence: US)
  Receive Date: 20160204
  Receipt Date: 20171114
  Transmission Date: 20180320
  Serious: Yes (Hospitalization, Other)
  Sender: FDA-Public Use
  Company Number: US-JNJFOC-20151211862

PATIENT
  Age: 68 Year
  Sex: Male

DRUGS (8)
  1. IMBRUVICA [Suspect]
     Active Substance: IBRUTINIB
     Indication: WALDENSTROM^S MACROGLOBULINAEMIA
     Route: 048
     Dates: start: 20140709, end: 201510
  2. IMBRUVICA [Suspect]
     Active Substance: IBRUTINIB
     Indication: WALDENSTROM^S MACROGLOBULINAEMIA
     Route: 048
     Dates: start: 20161104
  3. PROSCAR [Concomitant]
     Active Substance: FINASTERIDE
     Dates: start: 20150629
  4. PRIMIDONE. [Concomitant]
     Active Substance: PRIMIDONE
  5. IMBRUVICA [Suspect]
     Active Substance: IBRUTINIB
     Indication: PLASMA CELL MYELOMA
     Route: 048
     Dates: start: 20140709, end: 201510
  6. IMBRUVICA [Suspect]
     Active Substance: IBRUTINIB
     Indication: PLASMA CELL MYELOMA
     Route: 048
     Dates: start: 20161104
  7. PREVACID [Concomitant]
     Active Substance: LANSOPRAZOLE
     Dates: start: 20130102
  8. CALCIUM [Concomitant]
     Active Substance: CALCIUM
     Route: 048

REACTIONS (4)
  - Off label use [Unknown]
  - Cardiac failure acute [Unknown]
  - Incorrect dose administered [Unknown]
  - Atrial fibrillation [Unknown]

NARRATIVE: CASE EVENT DATE: 201510
